FAERS Safety Report 9209287 (Version 2)
Quarter: 2013Q2

REPORT INFORMATION
  Report Type: Spontaneous
  Country: JP (occurrence: JP)
  Receive Date: 20130404
  Receipt Date: 20130417
  Transmission Date: 20140414
  Serious: Yes (Disabling)
  Sender: FDA-Public Use
  Company Number: JP-ASTELLAS-2013JP004425

PATIENT
  Age: 81 Year
  Sex: Male
  Weight: 58.6 kg

DRUGS (8)
  1. BETANIS [Suspect]
     Indication: HYPERTONIC BLADDER
     Dosage: 50 MG, UID/QD
     Route: 048
     Dates: start: 20121205, end: 20130307
  2. HARNAL [Suspect]
     Dosage: 1 DF, UID/QD
     Route: 048
     Dates: start: 20121129
  3. PLETAAL [Concomitant]
     Dosage: 4 DF, UNKNOWN/D
     Route: 048
  4. TAKEPRON [Concomitant]
     Dosage: 1 DF, UID/QD
     Route: 048
  5. AMLODIN [Concomitant]
     Indication: HYPERTENSION
     Dosage: 2 DF, UID/QD
     Route: 048
  6. DIOVAN [Concomitant]
     Indication: HYPERTENSION
     Dosage: 2 DF, UID/QD
     Route: 048
  7. SUNRYTHM [Concomitant]
     Dosage: 1 DF, BID
     Route: 048
  8. LENDORMIN [Concomitant]
     Dosage: 0.25 MG, UID/QD
     Route: 048

REACTIONS (1)
  - Interstitial lung disease [Recovered/Resolved with Sequelae]
